FAERS Safety Report 10370501 (Version 1)
Quarter: 2014Q1

REPORT INFORMATION
  Report Type: Spontaneous
  Country: US (occurrence: None)
  Receive Date: 20140306
  Receipt Date: 20140306
  Transmission Date: 20141002
  Serious: Yes (Hospitalization)
  Sender: FDA-Public Use
  Company Number: 163-21880-13011016

PATIENT
  Age: 65 Year
  Sex: Female
  Weight: 68.95 kg

DRUGS (8)
  1. REVLIMID (LENALIDOMIDE) (15 MILLIGRAM, CAPSULES) [Suspect]
     Indication: PLASMA CELL MYELOMA
     Dosage: 13-NOV-2012 - ON HOLD
     Route: 048
     Dates: start: 20121113
  2. HCTZ (HYDROCHLOROTHIAZIDE) (UNKNOWN) [Concomitant]
  3. NEXIUM (ESOMEPRAZOLE) (UNKNOWN) [Concomitant]
  4. QUINAPRIL (QUINAPRIL) (UNKNOWN) [Concomitant]
  5. BISOPROLOL (BISOPROLOL) (UNKNOWN) [Concomitant]
  6. DEXAMETHASONE (DEXAMETHASONE) (UNKNOWN) [Concomitant]
  7. LOMOTIL (LOMOTIL) (UNKNOWN) [Concomitant]
  8. VITAMIN D (ERGOCALCIFEROL) (UNKNOWN) [Concomitant]

REACTIONS (1)
  - Pneumonia [None]
